FAERS Safety Report 5669516-4 (Version None)
Quarter: 2008Q1

REPORT INFORMATION
  Report Type: 
  Country: None (occurrence: None)
  Receive Date: 20080317
  Receipt Date: 20080313
  Transmission Date: 20080703
  Serious: No
  Sender: FDA-Public Use
  Company Number: PHHY2008JP02417

PATIENT
  Age: 45 Year
  Sex: Female

DRUGS (2)
  1. PABRON NASAL INFECTION CAPSULE [Suspect]
     Indication: HOUSE DUST ALLERGY
     Dosage: 2 DF/DAY
     Route: 048
     Dates: start: 20070408
  2. PABRON NASAL INFECTION CAPSULE [Suspect]
     Dosage: 1 CAPSULE
     Dates: start: 20070408

REACTIONS (3)
  - DIZZINESS [None]
  - MALAISE [None]
  - SOMNOLENCE [None]
